FAERS Safety Report 6594651-6 (Version None)
Quarter: 2010Q1

REPORT INFORMATION
  Report Type: 
  Country: None (occurrence: None)
  Receive Date: 20100222
  Receipt Date: 20100211
  Transmission Date: 20100710
  Serious: Yes (Death)
  Sender: FDA-Public Use
  Company Number: FR-AMGEN-US393664

PATIENT
  Age: 50 Year
  Sex: Male

DRUGS (2)
  1. ENBREL [Suspect]
     Indication: PSORIASIS
     Route: 058
  2. NEORAL [Suspect]
     Indication: PSORIASIS
     Dosage: UNKNOWN
     Route: 065

REACTIONS (1)
  - LUNG NEOPLASM MALIGNANT [None]
